FAERS Safety Report 18880477 (Version 2)
Quarter: 2021Q1

REPORT INFORMATION
  Report Type: Spontaneous
  Country: GB (occurrence: GB)
  Receive Date: 20210211
  Receipt Date: 20210217
  Transmission Date: 20210420
  Serious: Yes (Other)
  Sender: FDA-Public Use
  Company Number: GB-MYLANLABS-2021M1006428

PATIENT
  Age: 49 Year
  Sex: Female

DRUGS (4)
  1. CLOZARIL [Suspect]
     Active Substance: CLOZAPINE
     Dosage: UNK (LOW DOSE)
     Route: 048
     Dates: start: 20210205
  2. CLOZARIL [Suspect]
     Active Substance: CLOZAPINE
     Dosage: DOSE DECREASED
     Route: 048
     Dates: start: 2020
  3. CLOZARIL [Suspect]
     Active Substance: CLOZAPINE
     Dosage: 335 MILLIGRAM, QD
     Route: 048
  4. CLOZARIL [Suspect]
     Active Substance: CLOZAPINE
     Indication: SCHIZOPHRENIA
     Dosage: 300 MILLIGRAM, QD
     Route: 048
     Dates: start: 20090625

REACTIONS (3)
  - Electrocardiogram QT prolonged [Recovered/Resolved]
  - Product dose omission issue [Recovered/Resolved]
  - COVID-19 [Recovered/Resolved]

NARRATIVE: CASE EVENT DATE: 20210126
